FAERS Safety Report 7485972-3 (Version None)
Quarter: 2011Q2

REPORT INFORMATION
  Report Type: 
  Country: None (occurrence: None)
  Receive Date: 20110516
  Receipt Date: 20110516
  Transmission Date: 20111010
  Serious: Yes (Hospitalization)
  Sender: FDA-Public Use
  Company Number: None

PATIENT
  Sex: Female
  Weight: 59.55 kg

DRUGS (2)
  1. CARBOPLATIN [Suspect]
     Dosage: 441 MG
     Dates: end: 20110502
  2. TAXOL [Suspect]
     Dosage: 128 MG
     Dates: end: 20110502

REACTIONS (16)
  - DISORIENTATION [None]
  - BLOOD PRESSURE DIASTOLIC DECREASED [None]
  - FATIGUE [None]
  - URINARY TRACT INFECTION [None]
  - BLOOD ALBUMIN DECREASED [None]
  - BLOOD CALCIUM DECREASED [None]
  - NAUSEA [None]
  - BLOOD SODIUM DECREASED [None]
  - HAEMOGLOBIN DECREASED [None]
  - PYREXIA [None]
  - BLOOD UREA INCREASED [None]
  - BLOOD GLUCOSE INCREASED [None]
  - URETERIC STENOSIS [None]
  - BACTERIAL TEST POSITIVE [None]
  - HAEMATOCRIT DECREASED [None]
  - BLOOD CHLORIDE DECREASED [None]
